FAERS Safety Report 22173008 (Version 1)
Quarter: 2023Q2

REPORT INFORMATION
  Report Type: Spontaneous
  Country: DE (occurrence: DE)
  Receive Date: 20230404
  Receipt Date: 20230404
  Transmission Date: 20230722
  Serious: Yes (Other)
  Sender: FDA-Public Use
  Company Number: DE-BAYER-2021A219363

PATIENT
  Age: 52 Year

DRUGS (14)
  1. XARELTO [Suspect]
     Active Substance: RIVAROXABAN
     Indication: Deep vein thrombosis
     Dosage: 10 MG
     Route: 048
     Dates: end: 20210712
  2. XARELTO [Concomitant]
     Active Substance: RIVAROXABAN
     Indication: Thrombosis
     Dosage: UNK
     Route: 048
     Dates: start: 2020
  3. XARELTO [Concomitant]
     Active Substance: RIVAROXABAN
     Indication: Thrombosis
     Dosage: 20 MG, QD, 1-0-0-0
     Route: 048
     Dates: end: 202105
  4. XARELTO [Concomitant]
     Active Substance: RIVAROXABAN
     Indication: Thrombosis
     Dosage: 30 MG
     Route: 048
  5. XARELTO [Concomitant]
     Active Substance: RIVAROXABAN
     Indication: Thrombosis
     Dosage: 20 MG
     Route: 048
     Dates: start: 202108
  6. PANTOPRAZOL CT [Concomitant]
     Dosage: 20 MG, QD, 1-0-0-0
  7. LEVOTHYROXINE SODIUM [Concomitant]
     Active Substance: LEVOTHYROXINE SODIUM
     Dosage: 0.088 MG, QD, 0-0-1-0, RECOMMENDED IN THE EVENING
  8. BORNAPRINE HYDROCHLORIDE [Concomitant]
     Active Substance: BORNAPRINE HYDROCHLORIDE
     Dosage: 4 MG, QD, 1-0-0-0
  9. MELATONIN [Concomitant]
     Active Substance: MELATONIN
     Dosage: 2 MG, QD, 0-0-0-1, 22PM
  10. UTROGESTAN [Concomitant]
     Active Substance: PROGESTERONE
     Dosage: 200 MG, 0-0-2-0
  11. MACROGOL ABZ [Concomitant]
     Dosage: 1-1-0-0
  12. MAGNESIUM [Concomitant]
     Active Substance: MAGNESIUM
     Dosage: QD, 0-0-0-1
  13. HYDROXYCHLOROQUINE [Concomitant]
     Active Substance: HYDROXYCHLOROQUINE
     Dosage: 200 MG, BID, 1-0-1-0
  14. DICLOFENAC SODIUM [Concomitant]
     Active Substance: DICLOFENAC SODIUM
     Dosage: 75 MG, QD, 0-0-0-1

REACTIONS (1)
  - Thrombosis [Recovering/Resolving]

NARRATIVE: CASE EVENT DATE: 20210712
